FAERS Safety Report 8572082 (Version 3)
Quarter: 2012Q4

REPORT INFORMATION
  Report Type: 
  Country: US (occurrence: US)
  Receive Date: 20120521
  Receipt Date: 20120928
  Transmission Date: 20130627
  Serious: Yes (Other)
  Sender: FDA-Public Use
  Company Number: US-JNJFOC-20120508786

PATIENT
  Age: 36 Year
  Sex: Female
  Weight: 78.02 kg

DRUGS (6)
  1. REMICADE [Suspect]
     Indication: ANKYLOSING SPONDYLITIS
     Dosage: total dose: 500 mg
     Route: 042
     Dates: start: 20120504
  2. REMICADE [Suspect]
     Indication: ANKYLOSING SPONDYLITIS
     Dosage: total dose 500 mg
     Route: 042
  3. TOPAMAX [Concomitant]
     Indication: SLEEP DISORDER
     Route: 065
  4. TYLENOL [Concomitant]
     Indication: PREMEDICATION
     Route: 065
  5. CLARITIN [Concomitant]
     Indication: PREMEDICATION
     Route: 065
  6. LISINOPRIL [Concomitant]
     Indication: BLOOD PRESSURE
     Route: 065

REACTIONS (8)
  - Paraesthesia [Recovered/Resolved]
  - Flushing [Recovered/Resolved]
  - Panic attack [Recovered/Resolved]
  - Infusion related reaction [Recovered/Resolved]
  - Hypoaesthesia [Recovered/Resolved]
  - Abdominal discomfort [Recovered/Resolved]
  - Dizziness [Recovered/Resolved]
  - Headache [Recovered/Resolved]
